FAERS Safety Report 6967579-7 (Version None)
Quarter: 2010Q3

REPORT INFORMATION
  Report Type: 
  Country: None (occurrence: None)
  Receive Date: 20100907
  Receipt Date: 20100826
  Transmission Date: 20110219
  Serious: Yes (Other)
  Sender: FDA-Public Use
  Company Number: JP-PFIZER INC-2010107838

PATIENT
  Age: 80 Year
  Sex: Male

DRUGS (3)
  1. ALDACTONE [Suspect]
     Indication: ASCITES
     Route: 048
  2. TORASEMIDE [Concomitant]
     Route: 048
  3. LASIX [Concomitant]
     Route: 048

REACTIONS (3)
  - DYSARTHRIA [None]
  - HYPERAMMONAEMIA [None]
  - SOMNOLENCE [None]
